FAERS Safety Report 15468914 (Version 2)
Quarter: 2018Q4

REPORT INFORMATION
  Report Type: Spontaneous
  Country: JP (occurrence: JP)
  Receive Date: 20181005
  Receipt Date: 20181022
  Transmission Date: 20190205
  Serious: Yes (Hospitalization, Other)
  Sender: FDA-Public Use
  Company Number: JP-GLAXOSMITHKLINE-JP2018JPN165057

PATIENT
  Age: 75 Year
  Sex: Male
  Weight: 55 kg

DRUGS (11)
  1. SEREVENT DISKUS [Suspect]
     Active Substance: SALMETEROL XINAFOATE
     Dosage: UNK, QD
     Route: 055
  2. RESPLEN [Suspect]
     Active Substance: EPRAZINONE
     Dosage: UNK
     Route: 048
  3. MUCOSOLVAN (AMBROXOL HYDROCHLORIDE) [Suspect]
     Active Substance: AMBROXOL HYDROCHLORIDE
     Indication: PRODUCTIVE COUGH
     Dosage: UNK
     Route: 048
  4. RESTREAM [Suspect]
     Active Substance: TAMSULOSIN HYDROCHLORIDE
     Dosage: UNK
     Route: 048
  5. KLARICID [Suspect]
     Active Substance: CLARITHROMYCIN
     Dosage: UNK
     Route: 048
  6. TAKEPRON [Suspect]
     Active Substance: LANSOPRAZOLE
     Indication: ILEUS
     Dosage: UNK
     Route: 048
  7. SEREVENT DISKUS [Suspect]
     Active Substance: SALMETEROL XINAFOATE
     Indication: CHRONIC OBSTRUCTIVE PULMONARY DISEASE
     Dosage: UNK, BID
     Route: 055
  8. MUCODYNE [Suspect]
     Active Substance: CARBOCYSTEINE
     Indication: PRODUCTIVE COUGH
     Dosage: UNK
     Route: 048
  9. SENNOSIDE [Concomitant]
     Active Substance: SENNOSIDES
  10. SEREVENT DISKUS [Suspect]
     Active Substance: SALMETEROL XINAFOATE
     Dosage: 50 ?G, BID
     Route: 055
  11. MAGMITT [Concomitant]
     Active Substance: MAGNESIUM OXIDE

REACTIONS (5)
  - Urine output decreased [Recovered/Resolved]
  - Ileus [Recovering/Resolving]
  - Pollakiuria [Recovered/Resolved]
  - Intentional product misuse [Unknown]
  - Treatment noncompliance [Unknown]

NARRATIVE: CASE EVENT DATE: 20180903
